FAERS Safety Report 8431616-3 (Version None)
Quarter: 2012Q2

REPORT INFORMATION
  Report Type: 
  Country: None (occurrence: None)
  Receive Date: 20120323
  Receipt Date: 20110725
  Transmission Date: 20120825
  Serious: Yes (Hospitalization)
  Sender: FDA-Public Use
  Company Number: 163-21880-11063596

PATIENT
  Age: 57 Year
  Sex: Female

DRUGS (7)
  1. ZOMETA [Concomitant]
  2. PRIVIGEN (NAPHAZOLINE NITRATE) (UNKNOWN) [Concomitant]
  3. LEXAPRO (ESCITALOPRAM OXALATE) (UNKNOWN) [Concomitant]
  4. NEUPOGEN [Concomitant]
  5. DEXAMETHASONE [Concomitant]
  6. REVLIMID [Suspect]
     Indication: MULTIPLE MYELOMA
     Dosage: 25 MG, DAILY FOR 21 DAYS OF 28, PO
     Route: 048
     Dates: start: 20110518
  7. WELLBUTRIN XL (BUPROPION HYDROCHLORIDE) (UNKNOWN) [Concomitant]

REACTIONS (2)
  - NEUTROPENIA [None]
  - CELLULITIS [None]
